FAERS Safety Report 9504695 (Version 1)
Quarter: 2013Q3

REPORT INFORMATION
  Report Type: Report from Study
  Country: US (occurrence: US)
  Receive Date: 20130906
  Receipt Date: 20130906
  Transmission Date: 20140515
  Serious: No
  Sender: FDA-Public Use
  Company Number: US-ASTRAZENECA-2013SE65932

PATIENT
  Age: 59 Year
  Sex: Female
  Weight: 90.7 kg

DRUGS (8)
  1. LISINOPRIL [Suspect]
     Indication: HYPERTENSION
     Route: 048
  2. TOPROL-XL [Suspect]
     Indication: BLOOD PRESSURE ABNORMAL
     Route: 048
  3. SEROQUEL [Suspect]
     Indication: ANXIETY
     Route: 048
     Dates: start: 2005
  4. SEROQUEL [Suspect]
     Indication: BIPOLAR I DISORDER
     Route: 048
     Dates: start: 2005
  5. SEROQUEL [Suspect]
     Indication: SLEEP DISORDER
     Route: 048
     Dates: start: 2005
  6. LITHOBID [Concomitant]
     Indication: BIPOLAR I DISORDER
  7. AMLODIPINE [Concomitant]
     Indication: HYPERTENSION
  8. SIMVASTATIN [Concomitant]

REACTIONS (4)
  - Blood cholesterol abnormal [Unknown]
  - Hypertension [Unknown]
  - Thyroid disorder [Unknown]
  - Drug dose omission [Unknown]
